FAERS Safety Report 24057661 (Version 1)
Quarter: 2024Q3

REPORT INFORMATION
  Report Type: Spontaneous
  Country: US (occurrence: US)
  Receive Date: 20240706
  Receipt Date: 20240706
  Transmission Date: 20241017
  Serious: No
  Sender: ROCHE
  Company Number: US-ROCHE-10000017809

PATIENT
  Age: 59 Year
  Sex: Female

DRUGS (1)
  1. VABYSMO [Suspect]
     Active Substance: FARICIMAB\FARICIMAB-SVOA
     Indication: Diabetic retinal oedema
     Dosage: EVERY 6-7 WEEKS
     Route: 050
     Dates: start: 202301, end: 202306

REACTIONS (2)
  - Off label use [Unknown]
  - No adverse event [Unknown]
